FAERS Safety Report 13350720 (Version 2)
Quarter: 2017Q3

REPORT INFORMATION
  Report Type: Spontaneous
  Country: US (occurrence: US)
  Receive Date: 20170320
  Receipt Date: 20170717
  Transmission Date: 20171127
  Serious: Yes (Death, Hospitalization)
  Sender: FDA-Public Use
  Company Number: US-JNJFOC-20170316237

PATIENT
  Age: 67 Year
  Sex: Male

DRUGS (1)
  1. XARELTO [Suspect]
     Active Substance: RIVAROXABAN
     Indication: DEEP VEIN THROMBOSIS
     Dosage: IN VARYING DOSES OF 15 MG TO 20 MG
     Route: 048
     Dates: start: 20141008, end: 20150327

REACTIONS (2)
  - Haemorrhage intracranial [Fatal]
  - Anaemia [Unknown]

NARRATIVE: CASE EVENT DATE: 20141018
